FAERS Safety Report 5590321-1 (Version None)
Quarter: 2008Q1

REPORT INFORMATION
  Report Type: 
  Country: None (occurrence: None)
  Receive Date: 20080114
  Receipt Date: 20080108
  Transmission Date: 20080703
  Serious: Yes (Hospitalization)
  Sender: FDA-Public Use
  Company Number: GB-RANBAXY-2008RR-12455

PATIENT

DRUGS (8)
  1. DICLOFENAC SODIUM [Suspect]
     Indication: BACK PAIN
     Dosage: 50 MG, UNK
     Route: 048
     Dates: start: 20070926, end: 20071218
  2. IBUPROFEN TABLETS BP 200MG [Suspect]
     Indication: BACK PAIN
     Dosage: 400 MG, UNK
     Route: 048
     Dates: start: 20071007, end: 20071218
  3. ATROVENT [Concomitant]
     Indication: ASTHMA
     Dosage: 20 UG, UNK
     Route: 055
     Dates: start: 20071129
  4. CO-CODAMOL [Concomitant]
     Indication: BACK PAIN
     Dosage: UNK
     Route: 048
     Dates: start: 20071027
  5. DOMPERIDONE [Concomitant]
     Indication: ANTIEMETIC SUPPORTIVE CARE
     Dosage: 10 MG, UNK
     Route: 048
  6. GAVISCON [Concomitant]
     Indication: DYSPEPSIA
     Dosage: 10 ML, UNK
     Route: 048
     Dates: start: 20070926
  7. OMEPRAZOLE [Concomitant]
     Indication: PROPHYLAXIS AGAINST GASTROINTESTINAL ULCER
     Dosage: 20 MG, UNK
     Route: 048
     Dates: start: 20071020
  8. SALBUTAMOL TABLETS BP 2MG [Concomitant]
     Indication: ASTHMA
     Dosage: 100 UG, UNK
     Route: 055
     Dates: start: 20071129

REACTIONS (2)
  - CONVULSION [None]
  - HAEMATEMESIS [None]
